FAERS Safety Report 25866612 (Version 2)
Quarter: 2025Q4

REPORT INFORMATION
  Report Type: Spontaneous
  Country: US (occurrence: US)
  Receive Date: 20250930
  Receipt Date: 20251020
  Transmission Date: 20260117
  Serious: Yes (Life-Threatening, Hospitalization)
  Sender: TEVA
  Company Number: US-TEVA-VS-3375728

PATIENT
  Sex: Male

DRUGS (3)
  1. CLONIDINE [Suspect]
     Active Substance: CLONIDINE
     Indication: Behaviour disorder
     Dosage: 20 MCG, 1.13 MCG/KG DOSE
     Route: 065
  2. FLUTICASONE [Concomitant]
     Active Substance: FLUTICASONE
     Indication: Product used for unknown indication
     Route: 045
  3. VITAMIN D NOS [Concomitant]
     Active Substance: CHOLECALCIFEROL\ERGOCALCIFEROL
     Indication: Product used for unknown indication
     Route: 065

REACTIONS (6)
  - Accidental overdose [Unknown]
  - Hypertension [Recovered/Resolved]
  - Ileus paralytic [Recovering/Resolving]
  - Product preparation error [Unknown]
  - Toxic encephalopathy [Recovered/Resolved]
  - Bradycardia [Recovered/Resolved]
